FAERS Safety Report 15289842 (Version 1)
Quarter: 2018Q3

REPORT INFORMATION
  Report Type: Spontaneous
  Country: FR (occurrence: FR)
  Receive Date: 20180817
  Receipt Date: 20180817
  Transmission Date: 20181010
  Serious: Yes (Hospitalization)
  Sender: FDA-Public Use
  Company Number: FR-TEVA-2018-FR-942725

PATIENT
  Age: 52 Year
  Sex: Female
  Weight: 84 kg

DRUGS (1)
  1. CARBOPLATINE TEVA [Suspect]
     Active Substance: CARBOPLATIN
     Indication: BREAST CANCER
     Dosage: 700 MILLIGRAM
     Route: 042
     Dates: start: 20180328, end: 20180328

REACTIONS (5)
  - Oedema peripheral [Recovered/Resolved]
  - Hypersensitivity [Recovered/Resolved]
  - Erythema [Recovered/Resolved]
  - Inflammation [Recovered/Resolved]
  - Pruritus [Recovered/Resolved]

NARRATIVE: CASE EVENT DATE: 20180328
